FAERS Safety Report 19014013 (Version 1)
Quarter: 2021Q1

REPORT INFORMATION
  Report Type: Spontaneous
  Country: CA (occurrence: CA)
  Receive Date: 20210316
  Receipt Date: 20210316
  Transmission Date: 20210420
  Serious: Yes (Death, Life-Threatening, Other)
  Sender: FDA-Public Use
  Company Number: CA-FRESENIUS KABI-FK202102493

PATIENT
  Age: 17 Year
  Sex: Female

DRUGS (2)
  1. ACETYLCYSTEINE (MANUFACTURER UNKNOWN) [Suspect]
     Active Substance: ACETYLCYSTEINE
     Indication: PRODUCT USED FOR UNKNOWN INDICATION
     Dosage: TOTAL OF 1242.2MG/KG (60,000 MG)
     Route: 042
  2. PARACETAMOL [Suspect]
     Active Substance: ACETAMINOPHEN
     Indication: PRODUCT USED FOR UNKNOWN INDICATION
     Dosage: 11.5 GRAMS (238.1 MG/KG)
     Route: 065

REACTIONS (8)
  - Brain death [Fatal]
  - Vomiting [Unknown]
  - Confusional state [Unknown]
  - Brain oedema [Unknown]
  - Anaphylactoid reaction [Unknown]
  - Incorrect drug administration rate [Unknown]
  - Intracranial pressure increased [Unknown]
  - Brain herniation [Unknown]
